FAERS Safety Report 17557870 (Version 1)
Quarter: 2020Q1

REPORT INFORMATION
  Report Type: Spontaneous
  Country: US (occurrence: US)
  Receive Date: 20200311
  Receipt Date: 20200311
  Transmission Date: 20200409
  Serious: Yes (Hospitalization)
  Sender: FDA-Public Use
  Company Number: None

PATIENT
  Age: 89 Year
  Sex: Male

DRUGS (1)
  1. LIDOCAINE (LIDOCAINE HCL 0.5% INJ) [Suspect]
     Active Substance: LIDOCAINE HYDROCHLORIDE
     Dates: start: 20191030, end: 20191030

REACTIONS (10)
  - Dysphagia [None]
  - Hypotension [None]
  - Pharyngeal swelling [None]
  - Dyspnoea [None]
  - Cough [None]
  - Angioedema [None]
  - Headache [None]
  - Tachypnoea [None]
  - Choking [None]
  - Wheezing [None]

NARRATIVE: CASE EVENT DATE: 20191030
